FAERS Safety Report 11075557 (Version 1)
Quarter: 2015Q2

REPORT INFORMATION
  Report Type: Spontaneous
  Country: AT (occurrence: AT)
  Receive Date: 20150429
  Receipt Date: 20150429
  Transmission Date: 20150821
  Serious: Yes (Other)
  Sender: FDA-Public Use
  Company Number: PHHY2015AT048011

PATIENT
  Age: 78 Year
  Sex: Female

DRUGS (4)
  1. CLINDAC SANDOZ [Suspect]
     Active Substance: CLINDAMYCIN\CLINDAMYCIN PHOSPHATE
     Indication: PYREXIA
     Dosage: 1200 MG, QD
     Route: 048
     Dates: start: 20150412, end: 20150414
  2. MEFENAMIC-ACID [Suspect]
     Active Substance: MEFENAMIC ACID
     Indication: ARTHRALGIA
     Dosage: 500 MG, UNK
     Route: 048
     Dates: start: 20150417
  3. MEFENAMIC-ACID [Suspect]
     Active Substance: MEFENAMIC ACID
     Dosage: 125 MG, UNK
     Route: 048
     Dates: start: 20150418, end: 20150418
  4. VALSARTAN. [Concomitant]
     Active Substance: VALSARTAN
     Indication: HYPERTENSION
     Route: 065

REACTIONS (9)
  - Oedema peripheral [Recovered/Resolved]
  - Lymphoedema [Recovered/Resolved]
  - Respiratory distress [Recovered/Resolved]
  - Arthralgia [Recovered/Resolved]
  - Hearing impaired [Recovered/Resolved]
  - Insomnia [Recovered/Resolved]
  - Urinary retention [Recovered/Resolved]
  - Dysgeusia [Recovered/Resolved]
  - Joint swelling [Recovered/Resolved]

NARRATIVE: CASE EVENT DATE: 20150412
